FAERS Safety Report 11329508 (Version 1)
Quarter: 2015Q3

REPORT INFORMATION
  Report Type: Spontaneous
  Country: GB (occurrence: None)
  Receive Date: 20150730
  Receipt Date: 20150730
  Transmission Date: 20151125
  Serious: Yes (Hospitalization)
  Sender: FDA-Public Use
  Company Number: GB-H14001-15-01411

PATIENT
  Age: 66 Year

DRUGS (7)
  1. ALENDRONIC ACID [Concomitant]
     Active Substance: ALENDRONIC ACID
  2. PREDNISOLONE. [Concomitant]
     Active Substance: PREDNISOLONE
  3. TANSYKISUB [Concomitant]
  4. CO-AMOXICLAV [Suspect]
     Active Substance: AMOXICILLIN\CLAVULANIC ACID
     Indication: PRODUCT USED FOR UNKNOWN INDICATION
     Dates: start: 20150623, end: 201506
  5. ADCAL-D3(LEKOVIT CA)(UNKNOWN)(COLECALCIFEROL, CALCIUM CARBONATE) [Concomitant]
  6. LOPERAMIDE [Concomitant]
     Active Substance: LOPERAMIDE
  7. OMEPRAZOLE (OMEPRAZOLE) (UNKNOWN) (OMEPRAZOLE) [Suspect]
     Active Substance: OMEPRAZOLE
     Indication: PRODUCT USED FOR UNKNOWN INDICATION

REACTIONS (4)
  - Hepatic hypertrophy [None]
  - Hyponatraemia [None]
  - Jaundice [None]
  - Hepatic steatosis [None]
